FAERS Safety Report 19788178 (Version 1)
Quarter: 2021Q3

REPORT INFORMATION
  Report Type: Spontaneous
  Country: US (occurrence: US)
  Receive Date: 20210905
  Receipt Date: 20210905
  Transmission Date: 20211014
  Serious: No
  Sender: FDA-Public Use
  Company Number: US-SA-2021SA292096

PATIENT
  Age: 6 Year
  Sex: Female
  Weight: 22.7 kg

DRUGS (1)
  1. DUPIXENT [Suspect]
     Active Substance: DUPILUMAB
     Indication: ASTHMA
     Dosage: 300 MG, Q4W
     Route: 058

REACTIONS (2)
  - Asthma [Unknown]
  - Skin disorder [Unknown]

NARRATIVE: CASE EVENT DATE: 202108
